FAERS Safety Report 21662124 (Version 1)
Quarter: 2022Q4

REPORT INFORMATION
  Report Type: Spontaneous
  Country: US (occurrence: US)
  Receive Date: 20221130
  Receipt Date: 20221130
  Transmission Date: 20230113
  Serious: No
  Sender: FDA-Public Use
  Company Number: US-SA-SAC20221125001249

PATIENT
  Age: 16 Year
  Sex: Male

DRUGS (1)
  1. DUPIXENT [Suspect]
     Active Substance: DUPILUMAB
     Indication: Dermatitis allergic
     Dosage: 300MG QOW
     Route: 058
     Dates: start: 20221006

REACTIONS (5)
  - Discomfort [Unknown]
  - Dermatitis allergic [Unknown]
  - Condition aggravated [Unknown]
  - Sleep disorder [Unknown]
  - Rash [Unknown]

NARRATIVE: CASE EVENT DATE: 20220101
